FAERS Safety Report 5002385-4 (Version None)
Quarter: 2006Q2

REPORT INFORMATION
  Report Type: 
  Country: None (occurrence: None)
  Receive Date: 20060515
  Receipt Date: 20060505
  Transmission Date: 20061013
  Serious: Yes (Other)
  Sender: FDA-Public Use
  Company Number: TH-ABBOTT-06P-155-0332861-00

PATIENT

DRUGS (4)
  1. RITONAVIR [Suspect]
     Indication: HIV INFECTION
  2. INDINAVIR [Suspect]
     Indication: HIV INFECTION
  3. ZIDOVUDINE [Suspect]
     Indication: HIV INFECTION
  4. LAMIVUDINE [Suspect]
     Indication: HIV INFECTION

REACTIONS (2)
  - DRUG INTOLERANCE [None]
  - DRUG TOXICITY [None]
